FAERS Safety Report 5343316-7 (Version None)
Quarter: 2007Q2

REPORT INFORMATION
  Report Type: 
  Country: None (occurrence: None)
  Receive Date: 20070502
  Receipt Date: 20060608
  Transmission Date: 20071010
  Serious: Yes (Hospitalization)
  Sender: FDA-Public Use
  Company Number: PHEH2006US07623

PATIENT
  Age: 60 Year
  Sex: Male

DRUGS (2)
  1. LOTREL [Suspect]
     Indication: HYPERTENSION
     Dosage: 10/20 MG, QD, ORAL
     Route: 048
     Dates: start: 20060407, end: 20060607
  2. LEXAPRO [Concomitant]

REACTIONS (4)
  - ANGIOEDEMA [None]
  - LIP SWELLING [None]
  - LOCAL SWELLING [None]
  - THROAT TIGHTNESS [None]
